FAERS Safety Report 11980388 (Version 3)
Quarter: 2016Q2

REPORT INFORMATION
  Report Type: Spontaneous
  Country: US (occurrence: US)
  Receive Date: 20160129
  Receipt Date: 20160406
  Transmission Date: 20160815
  Serious: Yes (Hospitalization, Other)
  Sender: FDA-Public Use
  Company Number: US-PFIZER INC-2016049031

PATIENT
  Age: 83 Year
  Sex: Male

DRUGS (2)
  1. LATANOPROST. [Suspect]
     Active Substance: LATANOPROST
     Indication: GLAUCOMA
     Dosage: 2 GTT, DAILY (1 DROP EACH EYE DAILY)
     Route: 031
     Dates: start: 201312
  2. LATANOPROST. [Suspect]
     Active Substance: LATANOPROST
     Indication: INTRAOCULAR PRESSURE TEST
     Dosage: UNK
     Dates: end: 201601

REACTIONS (3)
  - Vision blurred [Recovered/Resolved]
  - Eye pain [Recovered/Resolved]
  - Eye pruritus [Unknown]

NARRATIVE: CASE EVENT DATE: 20151215
